FAERS Safety Report 23452167 (Version 1)
Quarter: 2024Q1

REPORT INFORMATION
  Report Type: Spontaneous
  Country: IT (occurrence: IT)
  Receive Date: 20240129
  Receipt Date: 20240129
  Transmission Date: 20240410
  Serious: Yes (Hospitalization)
  Sender: FDA-Public Use
  Company Number: None

PATIENT
  Age: 27 Year
  Sex: Female

DRUGS (4)
  1. QUETIAPINE [Suspect]
     Active Substance: QUETIAPINE
     Indication: Depression
     Dosage: 10 DOSAGE FORM (25MG, 10 TOTAL TABLETS)
     Route: 048
     Dates: start: 20231117, end: 20231117
  2. LORMETAZEPAM [Suspect]
     Active Substance: LORMETAZEPAM
     Indication: Insomnia
     Dosage: DOSAGE NOT AVAILABLE AS IT WAS NOT DECLARED
     Route: 048
     Dates: start: 20231117, end: 20231117
  3. ANAFRANIL [Suspect]
     Active Substance: CLOMIPRAMINE HYDROCHLORIDE
     Indication: Depression
     Dosage: 10 DOSAGE FORM (25MG, 10 TOTAL TABLETS)
     Route: 048
     Dates: start: 20231117, end: 20231117
  4. AMITRIPTYLINE HYDROCHLORIDE\PERPHENAZINE [Suspect]
     Active Substance: AMITRIPTYLINE HYDROCHLORIDE\PERPHENAZINE
     Indication: Anxiety
     Dosage: 10 DOSAGE FORM (10 TOTAL COMPRESSES)
     Route: 048
     Dates: start: 20231117, end: 20231117

REACTIONS (3)
  - Poisoning [Recovering/Resolving]
  - Presyncope [Recovering/Resolving]
  - Drug abuse [Recovering/Resolving]

NARRATIVE: CASE EVENT DATE: 20231117
